FAERS Safety Report 5846675-1 (Version None)
Quarter: 2008Q3

REPORT INFORMATION
  Report Type: 
  Country: None (occurrence: None)
  Receive Date: 20080815
  Receipt Date: 20080806
  Transmission Date: 20090109
  Serious: Yes (Hospitalization)
  Sender: FDA-Public Use
  Company Number: B0533159A

PATIENT
  Age: 78 Year
  Sex: Female
  Weight: 63.1 kg

DRUGS (11)
  1. AUGMENTIN [Suspect]
     Indication: DRUG USE FOR UNKNOWN INDICATION
     Dates: start: 20080716, end: 20080718
  2. TRAZOLAN [Concomitant]
     Dosage: 100MG PER DAY
     Route: 048
  3. ZOLPIDEM [Concomitant]
     Dosage: 7.5MG PER DAY
     Route: 048
  4. MOLSIDOMINE [Concomitant]
     Dosage: 16MG PER DAY
     Route: 048
  5. BUMETANIDE [Concomitant]
     Dosage: 16MG PER DAY
     Route: 048
  6. SPIRONOLACTONE [Concomitant]
  7. CARVEDILOL [Concomitant]
  8. LESCOL [Concomitant]
  9. OMEPRAZOLE [Concomitant]
  10. FOSAMAX [Concomitant]
  11. TRANSTEC [Concomitant]

REACTIONS (2)
  - HEPATIC NECROSIS [None]
  - HEPATITIS ACUTE [None]
